FAERS Safety Report 6805159-4 (Version None)
Quarter: 2010Q2

REPORT INFORMATION
  Report Type: 
  Country: None (occurrence: None)
  Receive Date: 20100628
  Receipt Date: 20070914
  Transmission Date: 20101027
  Serious: No
  Sender: FDA-Public Use
  Company Number: US-PFIZER INC-2007077046

PATIENT
  Sex: Male
  Weight: 107.7 kg

DRUGS (2)
  1. GEODON [Suspect]
     Indication: BIPOLAR DISORDER
     Dates: start: 20070705
  2. LAMICTAL [Concomitant]

REACTIONS (4)
  - FATIGUE [None]
  - LIBIDO DECREASED [None]
  - SOMNOLENCE [None]
  - SPERMATOZOA ABNORMAL [None]
